FAERS Safety Report 23960540 (Version 1)
Quarter: 2024Q2

REPORT INFORMATION
  Report Type: Spontaneous
  Country: NL (occurrence: NL)
  Receive Date: 20240611
  Receipt Date: 20240611
  Transmission Date: 20240716
  Serious: Yes (Hospitalization, Other)
  Sender: FDA-Public Use
  Company Number: NL-SUN PHARMACEUTICAL INDUSTRIES LTD-2024R1-450186

PATIENT
  Age: 8 Year
  Sex: Female
  Weight: 22 kg

DRUGS (6)
  1. FENTANYL [Interacting]
     Active Substance: FENTANYL\FENTANYL CITRATE
     Indication: Epilepsy
     Dosage: 50 MICROGRAM
     Route: 042
  2. FENTANYL [Interacting]
     Active Substance: FENTANYL\FENTANYL CITRATE
     Dosage: 25 MICROGRAM
     Route: 042
  3. FENTANYL [Interacting]
     Active Substance: FENTANYL\FENTANYL CITRATE
     Dosage: 25 MICROGRAM
     Route: 042
  4. PIRITRAMIDE [Suspect]
     Active Substance: PIRITRAMIDE
     Indication: Analgesic therapy
     Dosage: 7 MILLIGRAM
     Route: 042
  5. BACLOFEN [Suspect]
     Active Substance: BACLOFEN
     Indication: Epilepsy
     Dosage: 50 MICROGRAM/DAY
     Route: 065
  6. BACLOFEN [Suspect]
     Active Substance: BACLOFEN
     Indication: Cerebral palsy
     Dosage: 12 MICROGRAM/DAY
     Route: 065

REACTIONS (3)
  - Status epilepticus [Unknown]
  - Encephalopathy [Unknown]
  - Drug interaction [Unknown]
